FAERS Safety Report 5816668-9 (Version None)
Quarter: 2008Q3

REPORT INFORMATION
  Report Type: 
  Country: None (occurrence: None)
  Receive Date: 20080721
  Receipt Date: 20080709
  Transmission Date: 20090109
  Serious: Yes (Other)
  Sender: FDA-Public Use
  Company Number: CN-PFIZER INC-2008057118

PATIENT
  Age: 90 Year
  Sex: Male

DRUGS (1)
  1. ZYVOX [Suspect]

REACTIONS (1)
  - GASTROINTESTINAL HAEMORRHAGE [None]
